FAERS Safety Report 18234660 (Version 7)
Quarter: 2024Q2

REPORT INFORMATION
  Report Type: Spontaneous
  Country: BG (occurrence: BG)
  Receive Date: 20200904
  Receipt Date: 20240625
  Transmission Date: 20240716
  Serious: Yes (Death, Other)
  Sender: FDA-Public Use
  Company Number: BG-ROCHE-2656505

PATIENT
  Age: 19 Year
  Sex: Male

DRUGS (37)
  1. ESOMEPRAZOLE [Suspect]
     Active Substance: ESOMEPRAZOLE
     Indication: Product used for unknown indication
     Dosage: 40 MILLIGRAM(2X1 VIAL)
     Route: 065
     Dates: start: 2020
  2. NADROPARIN CALCIUM [Suspect]
     Active Substance: NADROPARIN CALCIUM
     Indication: Product used for unknown indication
     Dosage: 0.6 MILLILITER(1 VIAL MG/ML AS PRESCRIBED)
     Route: 065
     Dates: start: 2020
  3. FLUCONAZOLE [Suspect]
     Active Substance: FLUCONAZOLE
     Indication: Product used for unknown indication
     Dosage: UNK(2 MG/1 ML - 100 ML - X 2 VIAL)
     Route: 065
     Dates: start: 2020
  4. SODIUM CHLORIDE [Suspect]
     Active Substance: SODIUM CHLORIDE
     Indication: Product used for unknown indication
     Dosage: 0.9 PERCENT(100 ML ECO-BOTTLE BY PRESCRIPTION)
     Route: 065
     Dates: start: 2020
  5. VITAMIN C [Suspect]
     Active Substance: ASCORBIC ACID
     Indication: Product used for unknown indication
     Dosage: UNK(10 5 5 ML 2X4 AMP)
     Route: 065
     Dates: start: 2020
  6. FAMOTIDINE [Suspect]
     Active Substance: FAMOTIDINE
     Indication: Product used for unknown indication
     Dosage: 20 MILLIGRAM(2X1 VIAL)
     Route: 065
     Dates: start: 2020
  7. SINEQUAN [Suspect]
     Active Substance: DOXEPIN HYDROCHLORIDE
     Indication: Product used for unknown indication
     Dosage: UNK(X 2 CAPS)
     Route: 065
     Dates: start: 2020
  8. BROMHEXINE [Suspect]
     Active Substance: BROMHEXINE
     Indication: Product used for unknown indication
     Dosage: UNK(4 MG 2 ML - AS PRESCRIBED)
     Route: 065
     Dates: start: 2020
  9. FUROSEMIDE [Suspect]
     Active Substance: FUROSEMIDE
     Indication: Product used for unknown indication
     Dosage: 10 MILLIGRAM PER MILLILITRE(10 MG/ML - AS PRESCRIBED)
     Route: 065
     Dates: start: 2020
  10. AZITHROMYCIN [Suspect]
     Active Substance: AZITHROMYCIN
     Indication: Product used for unknown indication
     Dosage: 500 MILLIGRAM
     Route: 065
     Dates: start: 2020
  11. CLONIDINE HYDROCHLORIDE [Suspect]
     Active Substance: CLONIDINE HYDROCHLORIDE
     Indication: Product used for unknown indication
     Dosage: 0.15 MILLIGRAM PER MILLILITRE(0.15 MG/ML - AS PRESCRIBED)
     Route: 065
     Dates: start: 2020
  12. AMINO ACIDS\DEXTROSE\ELECTROLYTES NOS\SOYBEAN OIL [Suspect]
     Active Substance: AMINO ACIDS\DEXTROSE\ELECTROLYTES NOS\SOYBEAN OIL
     Indication: Product used for unknown indication
     Dosage: UNK(875 ML - 2 PCS)
     Route: 065
     Dates: start: 2020
  13. MEROPENEM [Suspect]
     Active Substance: MEROPENEM
     Indication: Product used for unknown indication
     Dosage: 1000 MILLIGRAM(3X1.0)
     Route: 065
  14. MEROPENEM [Suspect]
     Active Substance: MEROPENEM
     Dosage: 1 GRAM(3X1.0)
     Route: 065
  15. MELOXICAM\PRIDINOL MESILATE [Suspect]
     Active Substance: MELOXICAM\PRIDINOL MESILATE
     Indication: Product used for unknown indication
     Dosage: 100 MILLILITER(5 MG/ML)
     Route: 065
     Dates: start: 2020
  16. CALCIUM GLUCONATE [Suspect]
     Active Substance: CALCIUM GLUCONATE
     Indication: Product used for unknown indication
     Dosage: 8.94 MILLIGRAM PER MILLILITRE(8.94 MG/ML - 10 ML - 2X1 AMP)
     Route: 065
     Dates: start: 2020
  17. ALBUMIN HUMAN [Suspect]
     Active Substance: ALBUMIN HUMAN
     Indication: Product used for unknown indication
     Dosage: 10 PERCENT, TOTAL
     Route: 065
     Dates: start: 2020
  18. ALBUMIN HUMAN [Suspect]
     Active Substance: ALBUMIN HUMAN
     Dosage: 10 PERCENT
     Route: 065
  19. DEXAMETHASONE [Suspect]
     Active Substance: DEXAMETHASONE
     Indication: Product used for unknown indication
     Dosage: UNK(4 MG/1 ML - 2X2 AMP)
     Route: 065
     Dates: start: 2020
  20. METOCLOPRAMIDE HYDROCHLORIDE [Suspect]
     Active Substance: METOCLOPRAMIDE HYDROCHLORIDE
     Indication: Product used for unknown indication
     Dosage: UNK(10 MG - 2 ML - AS PRESCRIBED)
     Route: 065
     Dates: start: 2020
  21. CHLOROQUINE PHOSPHATE [Suspect]
     Active Substance: CHLOROQUINE PHOSPHATE
     Indication: Product used for unknown indication
     Dosage: 250 MILLIGRAM(2X1 TABLETS-)
     Route: 065
     Dates: start: 2020
  22. MEROPENEM [Suspect]
     Active Substance: MEROPENEM
     Indication: Product used for unknown indication
     Dosage: 1 GRAM(3X1.0)
     Route: 065
     Dates: start: 2020
  23. FURAZOLIDONE [Suspect]
     Active Substance: FURAZOLIDONE
     Indication: Product used for unknown indication
     Dosage: UNK(250 MG 10 - 2X2 CAPS)
     Route: 065
     Dates: start: 2020
  24. TOCILIZUMAB [Suspect]
     Active Substance: TOCILIZUMAB
     Indication: COVID-19 pneumonia
     Dosage: UNK(200 MG/20ML)
     Route: 065
     Dates: start: 20200101
  25. TOCILIZUMAB [Suspect]
     Active Substance: TOCILIZUMAB
     Dosage: UNK(400 MG/20 ML)
     Route: 065
     Dates: start: 2020
  26. VANCOCIN [Suspect]
     Active Substance: VANCOMYCIN HYDROCHLORIDE
     Indication: Product used for unknown indication
     Dosage: 1 GRAM(2X1.0)
     Route: 065
     Dates: start: 2020
  27. CALCIUM CHLORIDE\MAGNESIUM CHLORIDE\POTASSIUM CHLORIDE\SODIUM ACETATE\ [Suspect]
     Active Substance: CALCIUM CHLORIDE\MAGNESIUM CHLORIDE\POTASSIUM CHLORIDE\SODIUM ACETATE\SODIUM CHLORIDE
     Indication: Product used for unknown indication
     Dosage: UNK(500 L - ECO-VIAL - X500 ML)
     Route: 065
     Dates: start: 2020
  28. AZITHROMYCIN [Suspect]
     Active Substance: AZITHROMYCIN
     Indication: Product used for unknown indication
     Dosage: UNK
     Route: 065
     Dates: start: 2020
  29. MIDAZOLAM [Suspect]
     Active Substance: MIDAZOLAM
     Indication: Product used for unknown indication
     Dosage: UNK(5 MG - 5 5 ML - IN PERFUSION)
     Route: 065
     Dates: start: 2020
  30. METHYLPREDNISOLONE [Suspect]
     Active Substance: METHYLPREDNISOLONE
     Indication: Product used for unknown indication
     Dosage: UNK(40 MG / 2 ML)
     Route: 065
     Dates: start: 2020
  31. METAMIZOLE [Suspect]
     Active Substance: METAMIZOLE
     Indication: Product used for unknown indication
     Dosage: UNK(X 2 CAPS)
     Route: 065
  32. METAMIZOLE [Suspect]
     Active Substance: METAMIZOLE
     Dosage: UNK(X 2 CAPS AMP. 500MG/ML 2 ML)
     Route: 065
     Dates: start: 2020
  33. ENOXAPARIN SODIUM [Suspect]
     Active Substance: ENOXAPARIN SODIUM
     Indication: Product used for unknown indication
     Dosage: UNK(60 MG/0.60 ML - X1VIAL)
     Route: 065
  34. DEXTROSE [Suspect]
     Active Substance: DEXTROSE\DEXTROSE MONOHYDRATE
     Indication: Product used for unknown indication
     Dosage: 500 MILLILITER(BY PRESCRIPTION)
     Route: 042
  35. ACETAMINOPHEN [Suspect]
     Active Substance: ACETAMINOPHEN
     Indication: Product used for unknown indication
     Dosage: 100 MILLILITER(10 MG/ML)
     Route: 065
     Dates: start: 2020
  36. CITICOLINE [Suspect]
     Active Substance: CITICOLINE
     Indication: Product used for unknown indication
     Dosage: 1000 MILLIGRAM(1000 MG 4 ML 2X1 AMP)
     Route: 065
     Dates: start: 2020
  37. DIETARY SUPPLEMENT\HERBALS\MILK THISTLE [Suspect]
     Active Substance: MILK THISTLE
     Indication: Product used for unknown indication
     Dosage: UNK(90 MG 30 PCS. - ACCORDING TO THE SCHEME)
     Route: 065
     Dates: start: 2020

REACTIONS (15)
  - Acute respiratory failure [Fatal]
  - COVID-19 pneumonia [Fatal]
  - Cardiovascular insufficiency [Fatal]
  - Pulmonary oedema [Fatal]
  - Brain oedema [Fatal]
  - Encephalopathy [Fatal]
  - Embolism [Fatal]
  - Hypoxia [Fatal]
  - Hypertension [Fatal]
  - Tachypnoea [Fatal]
  - Confusional state [Fatal]
  - Hallucination [Fatal]
  - Cardiac arrest [Fatal]
  - Off label use [Unknown]
  - Intentional product use issue [Unknown]

NARRATIVE: CASE EVENT DATE: 20200101
